FAERS Safety Report 4339797-8 (Version None)
Quarter: 2004Q2

REPORT INFORMATION
  Report Type: 
  Country: None (occurrence: None)
  Receive Date: 20040416
  Receipt Date: 20030421
  Transmission Date: 20050107
  Serious: No
  Sender: FDA-Public Use
  Company Number: US-BRISTOL-MYERS SQUIBB COMPANY-12253399

PATIENT
  Age: 85 Year
  Sex: Male

DRUGS (1)
  1. CAPTOPRIL [Suspect]
     Route: 048

REACTIONS (3)
  - BALANCE DISORDER [None]
  - CONSTIPATION [None]
  - DIZZINESS [None]
